FAERS Safety Report 7311172-3 (Version None)
Quarter: 2011Q1

REPORT INFORMATION
  Report Type: 
  Country: None (occurrence: None)
  Receive Date: 20110224
  Receipt Date: 20110218
  Transmission Date: 20110831
  Serious: Yes (Hospitalization)
  Sender: FDA-Public Use
  Company Number: JP-ROCHE-760166

PATIENT
  Age: 23 Year
  Sex: Female

DRUGS (5)
  1. BASILIXIMAB [Concomitant]
     Dosage: DOSAGE IS UNCERTAIN.
     Route: 041
  2. RITUXAN [Concomitant]
     Dosage: DOSAGE IS UNCERTAIN.
     Route: 065
  3. TACROLIMUS [Concomitant]
     Dosage: DOSAGE IS UNCERTAIN.
     Route: 065
  4. CELLCEPT [Suspect]
     Indication: PROPHYLAXIS AGAINST TRANSPLANT REJECTION
     Dosage: NOTE: DOSAGE IS UNCERTAIN
     Route: 048
  5. METHYLPREDNISOLONE [Concomitant]
     Route: 065

REACTIONS (1)
  - FOCAL SEGMENTAL GLOMERULOSCLEROSIS [None]
